FAERS Safety Report 20588726 (Version 3)
Quarter: 2022Q4

REPORT INFORMATION
  Report Type: Spontaneous
  Country: US (occurrence: US)
  Receive Date: 20220314
  Receipt Date: 20221223
  Transmission Date: 20230113
  Serious: Yes (Other)
  Sender: FDA-Public Use
  Company Number: US-PFIZER INC-202101707020

PATIENT
  Age: 79 Year
  Sex: Female

DRUGS (1)
  1. ENBREL [Suspect]
     Active Substance: ETANERCEPT
     Indication: Product used for unknown indication
     Dosage: UNK
     Route: 065

REACTIONS (7)
  - Swelling [Unknown]
  - Drug hypersensitivity [Unknown]
  - Oral pain [Unknown]
  - Visual impairment [Unknown]
  - Rash [Unknown]
  - Drug ineffective [Unknown]
  - Angioedema [Unknown]
